FAERS Safety Report 7973327-4 (Version None)
Quarter: 2011Q4

REPORT INFORMATION
  Report Type: 
  Country: None (occurrence: None)
  Receive Date: 20111213
  Receipt Date: 20110615
  Transmission Date: 20120403
  Serious: No
  Sender: FDA-Public Use
  Company Number: US-AMGEN-USASP2011031051

PATIENT
  Sex: Female

DRUGS (2)
  1. ARANESP [Suspect]
     Dates: start: 20110101
  2. ARANESP [Suspect]
     Indication: RENAL FAILURE CHRONIC
     Dosage: UNK UNK, Q4WK
     Dates: start: 20110101

REACTIONS (1)
  - BLOOD IRON DECREASED [None]
